FAERS Safety Report 7220747 (Version 6)
Quarter: 2016Q2

REPORT INFORMATION
  Report Type: Report from Study
  Country: JP (occurrence: JP)
  Receive Date: 20091216
  Receipt Date: 20160531
  Transmission Date: 20160815
  Serious: Yes (Death, Hospitalization)
  Sender: FDA-Public Use
  Company Number: PHHY2009JP54374

PATIENT
  Age: 78 Year
  Sex: Male
  Weight: 41 kg

DRUGS (6)
  1. COMTAN [Suspect]
     Active Substance: ENTACAPONE
     Indication: DRUG EFFECT DECREASED
     Dosage: 100 MG, QD
     Route: 048
     Dates: start: 20071222, end: 20080124
  2. LEVODOPA-CARBIDOPA [Concomitant]
     Active Substance: CARBIDOPA\LEVODOPA
     Indication: PARKINSON^S DISEASE
     Dosage: 100 MG, TID
     Route: 048
     Dates: start: 20071221
  3. COMTAN [Suspect]
     Active Substance: ENTACAPONE
     Dosage: 100 MG, TID
     Route: 048
     Dates: start: 20010202, end: 20080316
  4. DROXIDOPA [Concomitant]
     Active Substance: DROXIDOPA
     Indication: PARKINSON^S DISEASE
     Dosage: 100 MG, BID
     Route: 048
  5. SELEGILINE HYDROCHLORIDE. [Concomitant]
     Active Substance: SELEGILINE HYDROCHLORIDE
     Indication: PARKINSON^S DISEASE
     Dosage: 5 MG, QD
     Route: 048
  6. COMTAN [Suspect]
     Active Substance: ENTACAPONE
     Dosage: 100 MG, BID
     Route: 048
     Dates: start: 20080125, end: 20080201

REACTIONS (5)
  - Pneumonia aspiration [Fatal]
  - Acute kidney injury [Not Recovered/Not Resolved]
  - Respiratory failure [Unknown]
  - Pyrexia [Fatal]
  - Dehydration [Not Recovered/Not Resolved]

NARRATIVE: CASE EVENT DATE: 20080215
